FAERS Safety Report 6879164-6 (Version None)
Quarter: 2010Q3

REPORT INFORMATION
  Report Type: 
  Country: None (occurrence: None)
  Receive Date: 20100728
  Receipt Date: 20100713
  Transmission Date: 20110219
  Serious: Yes (Hospitalization, Other)
  Sender: FDA-Public Use
  Company Number: PHHY2010DE20170

PATIENT
  Sex: Female
  Weight: 89 kg

DRUGS (14)
  1. ALISKIREN ALI+ [Suspect]
     Indication: HYPERTENSION
     Dosage: 300 MG/D
     Route: 048
     Dates: start: 20090211
  2. METOPROLOL [Concomitant]
     Indication: HYPERTENSION
     Dosage: 200 MG/D
     Route: 048
     Dates: start: 20040601
  3. ANTIDEPRESSANTS [Concomitant]
  4. ACTRAPHANE HM [Concomitant]
     Indication: DIABETES MELLITUS
     Dosage: 54 IU, UNK
     Route: 058
     Dates: start: 20050901
  5. ACTRAPID HUMAN [Concomitant]
     Indication: DIABETES MELLITUS
     Dosage: 30 IU, UNK
     Route: 058
     Dates: start: 20040401
  6. AQUAPHOR [Concomitant]
     Indication: HYPERTENSION
     Dosage: 40 MG/D
     Route: 048
     Dates: start: 20040601, end: 20091007
  7. DIURETICS [Concomitant]
     Dosage: UNK
     Dates: start: 20091007
  8. CALCIUM CHANNEL BLOCKERS [Concomitant]
     Dosage: UNK
     Dates: start: 20091007
  9. PLATELETS [Concomitant]
  10. OPIPRAMOL [Concomitant]
     Dosage: 100 MG/DAY
     Dates: start: 20070901
  11. TORSEMIDE [Concomitant]
     Dosage: 10 MG/DAY
     Dates: start: 20090901
  12. ACETYLSALICYLIC ACID SRT [Concomitant]
     Dosage: 100 MG/DAY
     Dates: start: 20090701
  13. ISCOVER [Concomitant]
     Dosage: 75 MG/D
     Dates: start: 20090701
  14. SIMVASTATIN [Concomitant]
     Dosage: 20 MG/D
     Dates: start: 20091001, end: 20091101

REACTIONS (5)
  - ANGINA PECTORIS [None]
  - ARTERIAL STENT INSERTION [None]
  - ARTERIOGRAM CORONARY [None]
  - CORONARY ARTERY DISEASE [None]
  - CORONARY ARTERY STENOSIS [None]
